FAERS Safety Report 5618642-4 (Version None)
Quarter: 2008Q1

REPORT INFORMATION
  Report Type: 
  Country: None (occurrence: None)
  Receive Date: 20080205
  Receipt Date: 20080205
  Transmission Date: 20080703
  Serious: Yes (Death, Life-Threatening, Hospitalization)
  Sender: FDA-Public Use
  Company Number: None

PATIENT
  Age: 47 Year
  Sex: Female
  Weight: 72.5755 kg

DRUGS (1)
  1. GADOLINIUM [Suspect]
     Indication: NEOPLASM MALIGNANT
     Dates: start: 20070110, end: 20070407

REACTIONS (1)
  - GENERAL PHYSICAL HEALTH DETERIORATION [None]
